FAERS Safety Report 8615248-X (Version None)
Quarter: 2012Q3

REPORT INFORMATION
  Report Type: 
  Country: None (occurrence: None)
  Receive Date: 20120823
  Receipt Date: 20120820
  Transmission Date: 20120928
  Serious: No
  Sender: FDA-Public Use
  Company Number: US-PFIZER INC-2012205077

PATIENT
  Sex: Male

DRUGS (1)
  1. LYRICA [Suspect]
     Indication: NEURITIS
     Dosage: 100 MG, DAILY

REACTIONS (3)
  - DIZZINESS [None]
  - DISTURBANCE IN ATTENTION [None]
  - CONSTIPATION [None]
